FAERS Safety Report 4309131-8 (Version None)
Quarter: 2004Q1

REPORT INFORMATION
  Report Type: 
  Country: None (occurrence: None)
  Receive Date: 20040301
  Receipt Date: 20040218
  Transmission Date: 20041129
  Serious: Yes (Death)
  Sender: FDA-Public Use
  Company Number: USA-2003-0011570

PATIENT
  Age: 33 Year
  Sex: Female
  Weight: 89.3 kg

DRUGS (12)
  1. OXYCONTIN TABLETS (OXYCODONE HYDROHCLORIDE) CR TABLET [Suspect]
  2. METHADONE HCL [Suspect]
  3. VALIUM [Suspect]
  4. ETHANOL (ETHANOL) [Suspect]
  5. EPHEDRINE (EPHEDRINE) [Suspect]
  6. PSEUDOEPHEDRINE HCL [Suspect]
  7. MEPROBAMATE [Suspect]
  8. OXAZEPAM [Suspect]
  9. TEMAZEPAM [Suspect]
  10. CANNABIS (CANNABIS) [Suspect]
  11. CAFFEINE (CAFFEINE) [Suspect]
  12. NICOTINE [Suspect]

REACTIONS (10)
  - ACCIDENTAL OVERDOSE [None]
  - CARDIOMEGALY [None]
  - COMA [None]
  - CORONARY ARTERY ATHEROSCLEROSIS [None]
  - HEPATIC CONGESTION [None]
  - HYPERTENSIVE HEART DISEASE [None]
  - MULTIPLE DRUG OVERDOSE [None]
  - PULMONARY CONGESTION [None]
  - SPLEEN CONGESTION [None]
  - TOXICOLOGIC TEST ABNORMAL [None]
